FAERS Safety Report 8170972-0 (Version None)
Quarter: 2012Q1

REPORT INFORMATION
  Report Type: 
  Country: None (occurrence: None)
  Receive Date: 20120228
  Receipt Date: 20120213
  Transmission Date: 20120608
  Serious: Yes (Hospitalization)
  Sender: FDA-Public Use
  Company Number: GR-JNJFOC-20120207527

PATIENT
  Sex: Male

DRUGS (6)
  1. REMICADE [Suspect]
     Dosage: REPORTED AS EVERY 2.5 MONTHS
     Route: 042
     Dates: start: 20020101
  2. METHOTREXATE [Concomitant]
     Dates: start: 20030101
  3. THYROHORMONE [Concomitant]
  4. REMICADE [Suspect]
     Indication: ANKYLOSING SPONDYLITIS
     Route: 042
     Dates: start: 20111111
  5. FOLIC ACID [Concomitant]
  6. PREDNISONE TAB [Concomitant]
     Dates: start: 20120207

REACTIONS (4)
  - LUPUS-LIKE SYNDROME [None]
  - PLEURISY [None]
  - ARTHRITIS [None]
  - PLEURAL EFFUSION [None]
